FAERS Safety Report 9352555 (Version 2)
Quarter: 2013Q4

REPORT INFORMATION
  Report Type: Report from Study
  Country: CA (occurrence: CA)
  Receive Date: 20130618
  Receipt Date: 20131023
  Transmission Date: 20140711
  Serious: Yes (Other)
  Sender: FDA-Public Use
  Company Number: CA-ROCHE-1237725

PATIENT
  Age: 54 Year
  Sex: Female
  Weight: 71.2 kg

DRUGS (4)
  1. RITUXAN [Suspect]
     Indication: ARTHRITIS
     Route: 042
     Dates: start: 20120807
  2. DIDROCAL [Suspect]
     Indication: PRODUCT USED FOR UNKNOWN INDICATION
     Route: 065
     Dates: end: 201305
  3. IMURAN [Concomitant]
  4. PREDNISONE [Concomitant]

REACTIONS (8)
  - Blood calcium increased [Unknown]
  - Influenza like illness [Not Recovered/Not Resolved]
  - Arthralgia [Not Recovered/Not Resolved]
  - Nasal congestion [Not Recovered/Not Resolved]
  - Laziness [Not Recovered/Not Resolved]
  - Sluggishness [Not Recovered/Not Resolved]
  - Fatigue [Recovered/Resolved]
  - Eye pain [Recovered/Resolved]
